FAERS Safety Report 11702902 (Version 2)
Quarter: 2016Q1

REPORT INFORMATION
  Report Type: Spontaneous
  Country: DK (occurrence: PA)
  Receive Date: 20151105
  Receipt Date: 20160205
  Transmission Date: 20160525
  Serious: Yes (Death, Hospitalization)
  Sender: FDA-Public Use
  Company Number: PA-FRI-1000080649

PATIENT
  Age: 89 Year
  Sex: Female

DRUGS (1)
  1. ESCITALOPRAM [Suspect]
     Active Substance: ESCITALOPRAM OXALATE
     Indication: PRODUCT USED FOR UNKNOWN INDICATION
     Route: 048
     Dates: start: 20151012

REACTIONS (7)
  - Asthenia [Fatal]
  - Intestinal haemorrhage [Fatal]
  - Acute hepatic failure [Fatal]
  - Jaundice [Fatal]
  - Nausea [Fatal]
  - Hepatomegaly [Fatal]
  - Drug-induced liver injury [Fatal]
